FAERS Safety Report 5944120-9 (Version None)
Quarter: 2008Q4

REPORT INFORMATION
  Report Type: 
  Country: None (occurrence: None)
  Receive Date: 20081106
  Receipt Date: 20081030
  Transmission Date: 20090506
  Serious: Yes (Other)
  Sender: FDA-Public Use
  Company Number: PL-AMGEN-UK308867

PATIENT
  Age: 51 Year
  Sex: Female

DRUGS (11)
  1. ARANESP [Suspect]
     Indication: RENAL FAILURE CHRONIC
     Route: 058
     Dates: start: 20080321, end: 20080414
  2. ARANESP [Suspect]
     Route: 058
     Dates: start: 20080414
  3. NEORECORMON [Suspect]
     Route: 058
     Dates: start: 20071210, end: 20080321
  4. CALCIUM CARBONATE [Concomitant]
     Route: 048
     Dates: start: 20061127
  5. ACIDUM FOLICUM [Concomitant]
     Route: 048
     Dates: start: 20061127
  6. VITAMIN B [Concomitant]
     Route: 048
     Dates: start: 20061127
  7. METOPROLOL TARTRATE [Concomitant]
     Route: 048
     Dates: start: 20070110
  8. NITRENDIPINE [Concomitant]
     Route: 048
     Dates: start: 20080110
  9. DICLOFENAC [Concomitant]
     Route: 048
  10. RANITIDINE [Concomitant]
     Route: 048
     Dates: start: 20080715
  11. PREDNISOLONE [Concomitant]
     Route: 048
     Dates: start: 20080715

REACTIONS (3)
  - APLASIA PURE RED CELL [None]
  - DRUG INEFFECTIVE [None]
  - MYELODYSPLASTIC SYNDROME [None]
